FAERS Safety Report 7444662-3 (Version None)
Quarter: 2011Q2

REPORT INFORMATION
  Report Type: 
  Country: None (occurrence: None)
  Receive Date: 20110429
  Receipt Date: 20110426
  Transmission Date: 20111010
  Serious: No
  Sender: FDA-Public Use
  Company Number: US-PFIZER INC-2011074485

PATIENT
  Sex: Male
  Weight: 92.971 kg

DRUGS (3)
  1. VIAGRA [Suspect]
     Indication: DIABETES MELLITUS
  2. VIAGRA [Suspect]
     Indication: HYPERTENSION
  3. VIAGRA [Suspect]
     Indication: ERECTILE DYSFUNCTION
     Dosage: 100 MG, AS NEEDED
     Route: 048
     Dates: start: 20040101

REACTIONS (3)
  - FLUSHING [None]
  - DRUG INEFFECTIVE [None]
  - NASAL CONGESTION [None]
